FAERS Safety Report 8354481-1 (Version None)
Quarter: 2012Q2

REPORT INFORMATION
  Report Type: 
  Country: None (occurrence: None)
  Receive Date: 20120511
  Receipt Date: 20120503
  Transmission Date: 20120825
  Serious: Yes (Hospitalization)
  Sender: FDA-Public Use
  Company Number: VE-ELI_LILLY_AND_COMPANY-VE201205002081

PATIENT
  Age: 51 Year
  Sex: Female

DRUGS (1)
  1. HUMALOG MIX 75/25 [Suspect]

REACTIONS (1)
  - OEDEMA PERIPHERAL [None]
